FAERS Safety Report 4957731-4 (Version None)
Quarter: 2006Q1

REPORT INFORMATION
  Report Type: 
  Country: None (occurrence: None)
  Receive Date: 20060315
  Receipt Date: 20060315
  Transmission Date: 20060701
  Serious: Yes (Hospitalization)
  Sender: FDA-Public Use
  Company Number: None

PATIENT
  Age: 49 Year
  Sex: Male
  Weight: 83.4619 kg

DRUGS (1)
  1. SULFUR (HOMEOPATHIC) [Suspect]
     Indication: FATIGUE
     Dates: start: 20060201, end: 20060210

REACTIONS (1)
  - STEVENS-JOHNSON SYNDROME [None]
